FAERS Safety Report 8238897-X (Version None)
Quarter: 2012Q1

REPORT INFORMATION
  Report Type: 
  Country: None (occurrence: None)
  Receive Date: 20120327
  Receipt Date: 20120319
  Transmission Date: 20120608
  Serious: Yes (Hospitalization)
  Sender: FDA-Public Use
  Company Number: GB-PFIZER INC-2012059100

PATIENT
  Age: 88 Year
  Sex: Male
  Weight: 94 kg

DRUGS (1)
  1. IBUPROFEN [Suspect]
     Indication: OSTEOARTHRITIS
     Dosage: 400 MG, ALTERNATE DAY
     Route: 048
     Dates: start: 20100317, end: 20120122

REACTIONS (1)
  - ACUTE MYOCARDIAL INFARCTION [None]
